FAERS Safety Report 4762372-8 (Version None)
Quarter: 2005Q3

REPORT INFORMATION
  Report Type: 
  Country: None (occurrence: None)
  Receive Date: 20050902
  Receipt Date: 20050316
  Transmission Date: 20060218
  Serious: Yes (Other)
  Sender: FDA-Public Use
  Company Number: 2005S1001415

PATIENT
  Age: 66 Year
  Sex: Male
  Weight: 70.3075 kg

DRUGS (2)
  1. FENTANYL [Suspect]
     Indication: PAIN
     Dosage: 25 MCG/HR; Q3D; TDER; 50 MCG/HR; Q3D; TDER
     Dates: start: 20050313
  2. FENTANYL [Suspect]
     Indication: PAIN
     Dosage: 25 MCG/HR; Q3D; TDER; 50 MCG/HR; Q3D; TDER
     Dates: start: 20050313

REACTIONS (4)
  - COUGH [None]
  - DRUG INEFFECTIVE [None]
  - MUSCULOSKELETAL STIFFNESS [None]
  - MYALGIA [None]
